FAERS Safety Report 24769552 (Version 1)
Quarter: 2024Q4

REPORT INFORMATION
  Report Type: Spontaneous
  Country: US (occurrence: None)
  Receive Date: 20241223
  Receipt Date: 20241223
  Transmission Date: 20250115
  Serious: Yes (Hospitalization)
  Sender: Public
  Company Number: None

PATIENT
  Age: 45 Year
  Sex: Male

DRUGS (3)
  1. AMBRISENTAN [Suspect]
     Active Substance: AMBRISENTAN
     Indication: Pulmonary hypertension
     Dosage: FREQUENCY : DAILY;?
     Route: 048
     Dates: start: 20230608
  2. UPTRAVI [Suspect]
     Active Substance: SELEXIPAG
  3. TADALAFIL [Suspect]
     Active Substance: TADALAFIL

REACTIONS (5)
  - Oedema peripheral [None]
  - Dyspnoea [None]
  - Swelling face [None]
  - Throat tightness [None]
  - Cough [None]

NARRATIVE: CASE EVENT DATE: 20241216
